FAERS Safety Report 11113503 (Version 1)
Quarter: 2015Q2

REPORT INFORMATION
  Report Type: Spontaneous
  Country: IT (occurrence: None)
  Receive Date: 20150512
  Receipt Date: 20150512
  Transmission Date: 20150821
  Serious: Yes (Hospitalization, Other)
  Sender: FDA-Public Use
  Company Number: DEP_02750_2015

PATIENT
  Age: 49 Year
  Sex: Female

DRUGS (1)
  1. TAPENTADOL (TAPENTADOL) [Suspect]
     Active Substance: TAPENTADOL
     Indication: PRODUCT USED FOR UNKNOWN INDICATION

REACTIONS (17)
  - Pneumonia klebsiella [None]
  - Jejunal perforation [None]
  - Small intestinal obstruction [None]
  - Leukocytosis [None]
  - Abdominal distension [None]
  - Impaired gastric emptying [None]
  - Infrequent bowel movements [None]
  - Ascites [None]
  - Peritonitis [None]
  - Post procedural sepsis [None]
  - Gastrointestinal necrosis [None]
  - C-reactive protein increased [None]
  - Vomiting [None]
  - Splenic infarction [None]
  - Escherichia test positive [None]
  - Nausea [None]
  - Gastrointestinal haemorrhage [None]
